FAERS Safety Report 7595165-7 (Version None)
Quarter: 2011Q3

REPORT INFORMATION
  Report Type: 
  Country: None (occurrence: None)
  Receive Date: 20110707
  Receipt Date: 20110628
  Transmission Date: 20111222
  Serious: Yes (Other)
  Sender: FDA-Public Use
  Company Number: BR-SANOFI-AVENTIS-2011SA023662

PATIENT
  Age: 86 Year
  Sex: Female
  Weight: 67 kg

DRUGS (10)
  1. SOLOSTAR [Suspect]
     Route: 058
     Dates: start: 20110101, end: 20110101
  2. SOLOSTAR [Suspect]
  3. SOLOSTAR [Suspect]
     Dates: start: 20110101
  4. LANTUS [Suspect]
     Route: 058
     Dates: start: 20110101, end: 20110101
  5. LANTUS [Suspect]
  6. LORAZEPAM [Concomitant]
     Indication: SLEEP DISORDER
     Route: 048
     Dates: start: 20050101
  7. LANTUS [Suspect]
     Dates: start: 20110101
  8. EXELON [Concomitant]
     Route: 048
  9. NOVORAPID [Concomitant]
     Route: 048
     Dates: start: 20070101
  10. VALSARTAN [Concomitant]
     Indication: BLOOD PRESSURE
     Route: 048
     Dates: start: 20060101

REACTIONS (12)
  - HYPERGLYCAEMIA [None]
  - FATIGUE [None]
  - WRONG TECHNIQUE IN DRUG USAGE PROCESS [None]
  - DEVICE DAMAGE [None]
  - HIP FRACTURE [None]
  - SLUGGISHNESS [None]
  - DEVICE INEFFECTIVE [None]
  - PRODUCT QUALITY ISSUE [None]
  - DRUG INTERACTION [None]
  - FALL [None]
  - DRUG INEFFECTIVE [None]
  - PAIN [None]
